FAERS Safety Report 4784910-1 (Version None)
Quarter: 2005Q3

REPORT INFORMATION
  Report Type: 
  Country: None (occurrence: None)
  Receive Date: 20050930
  Receipt Date: 20041222
  Transmission Date: 20060218
  Serious: Yes (Other)
  Sender: FDA-Public Use
  Company Number: US-AMGEN-US104556

PATIENT
  Sex: Female

DRUGS (2)
  1. ENBREL [Suspect]
     Indication: RHEUMATOID ARTHRITIS
     Route: 058
     Dates: start: 20000301, end: 20020621
  2. IBUPROFEN [Concomitant]

REACTIONS (2)
  - LHERMITTE'S SIGN [None]
  - RELAPSING-REMITTING MULTIPLE SCLEROSIS [None]
